FAERS Safety Report 20639371 (Version 1)
Quarter: 2022Q1

REPORT INFORMATION
  Report Type: Spontaneous
  Country: EG (occurrence: EG)
  Receive Date: 20220326
  Receipt Date: 20220326
  Transmission Date: 20220423
  Serious: Yes (Other)
  Sender: FDA-Public Use
  Company Number: EG-AMGEN-EGYSP2022050858

PATIENT
  Sex: Female

DRUGS (1)
  1. NPLATE [Suspect]
     Active Substance: ROMIPLOSTIM
     Indication: Immune thrombocytopenia
     Dosage: 10 MICROGRAM/KILOGRAM
     Route: 065

REACTIONS (4)
  - Myelofibrosis [Unknown]
  - Haemorrhage [Unknown]
  - Loss of therapeutic response [Unknown]
  - Maternal exposure during pregnancy [Unknown]
